FAERS Safety Report 20818236 (Version 1)
Quarter: 2022Q2

REPORT INFORMATION
  Report Type: Spontaneous
  Country: US (occurrence: US)
  Receive Date: 20220512
  Receipt Date: 20220512
  Transmission Date: 20220720
  Serious: No
  Sender: FDA-Public Use
  Company Number: US-Emergent Biosolutions-22000079

PATIENT
  Age: 39 Year
  Sex: Female

DRUGS (1)
  1. NARCAN [Suspect]
     Active Substance: NALOXONE HYDROCHLORIDE
     Indication: Product used for unknown indication
     Dosage: 4 MILLIGRAM, SQUIRTED 1 DEVICE IN HER NOSE
     Route: 045
     Dates: start: 20220428, end: 20220428

REACTIONS (2)
  - Unintentional use for unapproved indication [Unknown]
  - Product after taste [Unknown]

NARRATIVE: CASE EVENT DATE: 20220428
